FAERS Safety Report 15117856 (Version 7)
Quarter: 2018Q3

REPORT INFORMATION
  Report Type: Report from Study
  Country: US (occurrence: US)
  Receive Date: 20180706
  Receipt Date: 20180814
  Transmission Date: 20181010
  Serious: Yes (Hospitalization)
  Sender: FDA-Public Use
  Company Number: US-B.I. PHARMACEUTICALS,INC./RIDGEFIELD-2018-BI-031485

PATIENT
  Age: 61 Year
  Sex: Female

DRUGS (1)
  1. OFEV [Suspect]
     Active Substance: NINTEDANIB
     Indication: IDIOPATHIC PULMONARY FIBROSIS
     Route: 048
     Dates: start: 20180606

REACTIONS (31)
  - Dyspnoea [Not Recovered/Not Resolved]
  - Feeling abnormal [Unknown]
  - Tension [Unknown]
  - Hypoacusis [Unknown]
  - Rash [Unknown]
  - Cough [Unknown]
  - Speech disorder [Not Recovered/Not Resolved]
  - Skin disorder [Unknown]
  - Dyspnoea [Unknown]
  - Peripheral swelling [Not Recovered/Not Resolved]
  - Cellulitis [Not Recovered/Not Resolved]
  - Anxiety [Unknown]
  - Limb discomfort [Unknown]
  - Pain in extremity [Unknown]
  - Faeces soft [Not Recovered/Not Resolved]
  - Oxygen saturation decreased [Unknown]
  - Dyspnoea [Not Recovered/Not Resolved]
  - Rash [Recovered/Resolved]
  - Pain [Unknown]
  - Swelling [Unknown]
  - Oxygen saturation abnormal [Unknown]
  - Increased appetite [Not Recovered/Not Resolved]
  - Rash pruritic [Unknown]
  - Gait disturbance [Not Recovered/Not Resolved]
  - Faeces soft [Unknown]
  - Insomnia [Unknown]
  - Clostridium difficile infection [Unknown]
  - Peripheral swelling [Unknown]
  - Abdominal pain [Not Recovered/Not Resolved]
  - Hepatic enzyme increased [Not Recovered/Not Resolved]
  - Joint swelling [Not Recovered/Not Resolved]

NARRATIVE: CASE EVENT DATE: 20180808
